FAERS Safety Report 7349969-6 (Version None)
Quarter: 2011Q1

REPORT INFORMATION
  Report Type: 
  Country: None (occurrence: None)
  Receive Date: 20110314
  Receipt Date: 20110311
  Transmission Date: 20110831
  Serious: Yes (Hospitalization)
  Sender: FDA-Public Use
  Company Number: BR-ELI_LILLY_AND_COMPANY-BR201007005223

PATIENT
  Sex: Female
  Weight: 60.3 kg

DRUGS (5)
  1. GEMCITABINE HYDROCHLORIDE [Suspect]
     Indication: BREAST CANCER METASTATIC
     Dosage: 1250 MG/M2, OTHER
     Route: 042
     Dates: start: 20100506
  2. PACLITAXEL [Suspect]
     Indication: BREAST CANCER METASTATIC
     Dosage: 175 MG/M2, OTHER
     Route: 042
     Dates: start: 20100506
  3. LACTULOSE [Concomitant]
     Dates: end: 20100701
  4. PLASIL [Concomitant]
     Dates: start: 20100714, end: 20100714
  5. ZOMETA [Concomitant]

REACTIONS (1)
  - PNEUMONIA [None]
